FAERS Safety Report 8290585-X (Version None)
Quarter: 2012Q2

REPORT INFORMATION
  Report Type: 
  Country: None (occurrence: None)
  Receive Date: 20120417
  Receipt Date: 20110527
  Transmission Date: 20120825
  Serious: No
  Sender: FDA-Public Use
  Company Number: US-ASTRAZENECA-2011SE33209

PATIENT
  Age: 44 Year
  Sex: Female

DRUGS (1)
  1. NEXIUM [Suspect]
     Indication: GASTROOESOPHAGEAL REFLUX DISEASE
     Route: 048
     Dates: start: 20100101

REACTIONS (2)
  - JOINT CREPITATION [None]
  - MUSCULAR WEAKNESS [None]
